FAERS Safety Report 7340164-3 (Version None)
Quarter: 2011Q1

REPORT INFORMATION
  Report Type: 
  Country: None (occurrence: None)
  Receive Date: 20110309
  Receipt Date: 20110302
  Transmission Date: 20110831
  Serious: Yes (Other)
  Sender: FDA-Public Use
  Company Number: US-PFIZER INC-2011045910

PATIENT
  Sex: Male

DRUGS (3)
  1. LYRICA [Suspect]
     Indication: NERVE INJURY
     Dosage: UNK
  2. NEURONTIN [Suspect]
     Indication: NERVE INJURY
     Dosage: UNK
  3. LEXAPRO [Concomitant]
     Dosage: 10 MG, UNK

REACTIONS (1)
  - SUICIDAL IDEATION [None]
